FAERS Safety Report 9852304 (Version 1)
Quarter: 2014Q1

REPORT INFORMATION
  Report Type: Spontaneous
  Country: US (occurrence: US)
  Receive Date: 20140129
  Receipt Date: 20140129
  Transmission Date: 20141002
  Serious: Yes (Hospitalization)
  Sender: FDA-Public Use
  Company Number: US-NOVOPROD-398623

PATIENT
  Age: 62 Year
  Sex: Male
  Weight: 93.42 kg

DRUGS (3)
  1. VICTOZA [Suspect]
     Indication: TYPE 2 DIABETES MELLITUS
     Dosage: 0.6 MG QD
     Route: 058
     Dates: start: 201110
  2. VICTOZA [Suspect]
     Dosage: 1.2 MG QD
     Route: 058
     Dates: end: 201308
  3. VICTOZA [Suspect]
     Dosage: 0.6 MG QD
     Route: 058
     Dates: start: 201310

REACTIONS (2)
  - Coronary artery occlusion [Recovered/Resolved]
  - Vomiting [Recovered/Resolved]
